FAERS Safety Report 5411563-1 (Version None)
Quarter: 2007Q3

REPORT INFORMATION
  Report Type: 
  Country: None (occurrence: None)
  Receive Date: 20070810
  Receipt Date: 20031007
  Transmission Date: 20080115
  Serious: Yes (Other)
  Sender: FDA-Public Use
  Company Number: US-PFIZER INC-2007058787

PATIENT

DRUGS (2)
  1. ZYVOX [Suspect]
  2. PROZAC [Suspect]

REACTIONS (1)
  - SICK SINUS SYNDROME [None]
